FAERS Safety Report 22987892 (Version 18)
Quarter: 2025Q4

REPORT INFORMATION
  Report Type: Report from Study
  Country: US (occurrence: US)
  Receive Date: 20230926
  Receipt Date: 20251126
  Transmission Date: 20260118
  Serious: Yes (Other)
  Sender: TAKEDA
  Company Number: US-TAKEDA-2023TUS092169

PATIENT
  Age: 69 Year
  Sex: Female

DRUGS (52)
  1. IXAZOMIB [Suspect]
     Active Substance: IXAZOMIB
     Indication: Plasma cell myeloma in remission
     Dosage: 4 MILLIGRAM
  2. IXAZOMIB [Suspect]
     Active Substance: IXAZOMIB
     Indication: Plasma cell myeloma
     Dosage: 4 MILLIGRAM
  3. IXAZOMIB [Suspect]
     Active Substance: IXAZOMIB
     Dosage: 4 MILLIGRAM
     Dates: start: 20200316, end: 20231117
  4. IXAZOMIB [Suspect]
     Active Substance: IXAZOMIB
     Dosage: 4 MILLIGRAM
  5. IXAZOMIB [Suspect]
     Active Substance: IXAZOMIB
     Dosage: 4 MILLIGRAM, 1/WEEK
  6. IXAZOMIB [Suspect]
     Active Substance: IXAZOMIB
     Dosage: 4 MILLIGRAM, QD
  7. IXAZOMIB [Suspect]
     Active Substance: IXAZOMIB
     Dosage: 15 MILLIGRAM, QD
  8. IXAZOMIB [Suspect]
     Active Substance: IXAZOMIB
     Dosage: 4 MILLIGRAM
  9. IXAZOMIB [Suspect]
     Active Substance: IXAZOMIB
     Dosage: 4 MILLIGRAM, 1/WEEK
  10. IXAZOMIB [Suspect]
     Active Substance: IXAZOMIB
     Dosage: 4 MILLIGRAM
  11. IXAZOMIB [Suspect]
     Active Substance: IXAZOMIB
     Dosage: 4 MILLIGRAM, 1/WEEK
  12. IXAZOMIB [Suspect]
     Active Substance: IXAZOMIB
     Dosage: 4 MILLIGRAM
  13. VELCADE [Suspect]
     Active Substance: BORTEZOMIB
     Indication: Plasma cell myeloma in remission
     Dosage: 1.3 MILLIGRAM/SQ. METER, 1/WEEK
     Dates: start: 20180618, end: 20200302
  14. DEXAMETHASONE [Suspect]
     Active Substance: DEXAMETHASONE
     Indication: Plasma cell myeloma in remission
     Dosage: 20 MILLIGRAM, 1/WEEK
     Dates: start: 20180618
  15. DEXAMETHASONE [Suspect]
     Active Substance: DEXAMETHASONE
     Dosage: 20 MILLIGRAM
  16. DEXAMETHASONE [Suspect]
     Active Substance: DEXAMETHASONE
     Dosage: 4 MILLIGRAM
  17. REVLIMID [Suspect]
     Active Substance: LENALIDOMIDE
     Indication: Plasma cell myeloma in remission
     Dosage: UNK
  18. REVLIMID [Suspect]
     Active Substance: LENALIDOMIDE
     Dosage: 15 MILLIGRAM
  19. REVLIMID [Suspect]
     Active Substance: LENALIDOMIDE
     Dosage: 15 MILLIGRAM
  20. CLARITIN [Suspect]
     Active Substance: LORATADINE
     Indication: Rhinorrhoea
     Dosage: UNK
  21. CYCLOPHOSPHAMIDE [Suspect]
     Active Substance: CYCLOPHOSPHAMIDE
     Indication: Plasma cell myeloma in remission
     Dosage: UNK
  22. TORSEMIDE [Suspect]
     Active Substance: TORSEMIDE
     Indication: Product used for unknown indication
     Dosage: UNK
  23. BENADRYL [Suspect]
     Active Substance: DIPHENHYDRAMINE HYDROCHLORIDE
     Indication: Hypersensitivity
     Dosage: UNK
  24. SOLIFENACIN SUCCINATE [Concomitant]
     Active Substance: SOLIFENACIN SUCCINATE
     Dosage: 5 MILLIGRAM
  25. ATROPINE SULFATE\DIPHENOXYLATE HYDROCHLORIDE [Concomitant]
     Active Substance: ATROPINE SULFATE\DIPHENOXYLATE HYDROCHLORIDE
     Dosage: UNK
  26. VALACYCLOVIR [Concomitant]
     Active Substance: VALACYCLOVIR HYDROCHLORIDE
     Dosage: 500 MILLIGRAM
  27. LISINOPRIL [Concomitant]
     Active Substance: LISINOPRIL
     Dosage: 10 MILLIGRAM
  28. LISINOPRIL [Concomitant]
     Active Substance: LISINOPRIL
     Dosage: 5 MILLIGRAM
  29. BUSPIRONE HCL [Concomitant]
     Active Substance: BUSPIRONE HYDROCHLORIDE
     Dosage: 15 MILLIGRAM, QD
     Dates: start: 20240729
  30. FLUCONAZOLE [Concomitant]
     Active Substance: FLUCONAZOLE
     Dosage: 150 MILLIGRAM
  31. FLONASE ALLERGY RELIEF [Concomitant]
     Active Substance: FLUTICASONE PROPIONATE
     Dosage: 50 MICROGRAM
  32. LORATADINE [Concomitant]
     Active Substance: LORATADINE
     Dosage: 10 MILLIGRAM
  33. ASPIRIN [Concomitant]
     Active Substance: ASPIRIN
     Dosage: 81 MILLIGRAM, BID
     Dates: start: 20240729
  34. TYLENOL [Concomitant]
     Active Substance: ACETAMINOPHEN
     Dosage: 500 MILLIGRAM
  35. GABAPENTIN [Concomitant]
     Active Substance: GABAPENTIN
     Indication: Neuropathy peripheral
     Dosage: 300 MILLIGRAM, BID
     Dates: start: 20240729
  36. IPRATROPIUM BROMIDE [Concomitant]
     Active Substance: IPRATROPIUM BROMIDE
     Dosage: UNK
  37. OMEPRAZOLE [Concomitant]
     Active Substance: OMEPRAZOLE
     Dosage: 40 MILLIGRAM, QD
  38. OMEPRAZOLE [Concomitant]
     Active Substance: OMEPRAZOLE
     Dosage: 20 MILLIGRAM, QD
     Dates: start: 20240729
  39. ZOLEDRONIC ACID [Concomitant]
     Active Substance: ZOLEDRONIC ACID
     Dosage: 4MG/5ML
  40. ZOMETA [Concomitant]
     Active Substance: ZOLEDRONIC ACID
     Dosage: UNK
  41. BENZONATATE [Concomitant]
     Active Substance: BENZONATATE
     Dosage: UNK
  42. CALCIUM [Concomitant]
     Active Substance: CALCIUM
     Dosage: UNK
  43. METHOCARBAMOL [Concomitant]
     Active Substance: METHOCARBAMOL
     Dosage: UNK
  44. TYLENOL EXTRA STRENGTH [Concomitant]
     Active Substance: ACETAMINOPHEN
     Dosage: UNK
  45. VENLAFAXINE HCL [Concomitant]
     Active Substance: VENLAFAXINE HYDROCHLORIDE
     Dosage: 75 MILLIGRAM, QD
     Dates: start: 20250125
  46. SULFAMETHOXAZOLE AND TRIMETHOPRIM [Concomitant]
     Active Substance: SULFAMETHOXAZOLE\TRIMETHOPRIM
     Dosage: UNK
  47. FLUZONE HIGH-DOSE NOS [Concomitant]
     Active Substance: INFLUENZA VIRUS VACCINE
     Dosage: UNK
  48. Comirnaty [Concomitant]
     Dosage: UNK
  49. ABRYSVO [Concomitant]
     Active Substance: RECOMBINANT STABILIZED RSV A PREFUSION F ANTIGEN\RECOMBINANT STABILIZED RSV B PREFUSION F ANTIGEN
     Dosage: UNK
  50. MONTELUKAST SODIUM [Concomitant]
     Active Substance: MONTELUKAST SODIUM
     Dosage: UNK
  51. ROGAINE [Concomitant]
     Active Substance: MINOXIDIL
     Dosage: UNK
  52. POTASSIUM CHLORIDE [Concomitant]
     Active Substance: POTASSIUM CHLORIDE
     Dosage: UNK

REACTIONS (59)
  - Neuropathy peripheral [Unknown]
  - Pruritus [Unknown]
  - Neutropenia [Unknown]
  - Urinary incontinence [Unknown]
  - Syncope [Unknown]
  - Spinal fracture [Unknown]
  - Pancytopenia [Unknown]
  - Cerebral atrophy [Unknown]
  - Cerebral small vessel ischaemic disease [Unknown]
  - Hypokalaemia [Unknown]
  - Thrombocytopenia [Unknown]
  - Rhinorrhoea [Unknown]
  - Staphylococcal infection [Not Recovered/Not Resolved]
  - Arthralgia [Not Recovered/Not Resolved]
  - Joint swelling [Not Recovered/Not Resolved]
  - Seasonal allergy [Not Recovered/Not Resolved]
  - Leukopenia [Unknown]
  - Blood pressure decreased [Unknown]
  - Product dose omission issue [Unknown]
  - Dry eye [Unknown]
  - Hypersensitivity [Not Recovered/Not Resolved]
  - Osteoarthritis [Unknown]
  - Dysponesis [Unknown]
  - Nervous system disorder [Unknown]
  - Amnesia [Unknown]
  - Peripheral swelling [Unknown]
  - Tremor [Unknown]
  - Fall [Unknown]
  - Memory impairment [Unknown]
  - Product packaging issue [Unknown]
  - Product packaging quantity issue [Unknown]
  - Goitre [Unknown]
  - Inappropriate schedule of product administration [Unknown]
  - Product use complaint [Unknown]
  - Hiatus hernia [Unknown]
  - Osteopenia [Unknown]
  - Musculoskeletal discomfort [Unknown]
  - Drug tolerance decreased [Unknown]
  - Intervertebral disc degeneration [Unknown]
  - Product dose omission in error [Unknown]
  - Overdose [Unknown]
  - Back pain [Unknown]
  - Fatigue [Unknown]
  - Dizziness [Recovered/Resolved]
  - Visual impairment [Unknown]
  - Anaemia [Unknown]
  - Sinusitis [Unknown]
  - Pain [Unknown]
  - Headache [Unknown]
  - Hypoaesthesia [Unknown]
  - Anxiety [Unknown]
  - Cough [Recovering/Resolving]
  - Herpes zoster [Unknown]
  - Gastrooesophageal reflux disease [Unknown]
  - Upper respiratory tract infection [Unknown]
  - Diarrhoea [Recovering/Resolving]
  - Oedema peripheral [Unknown]
  - Rash [Unknown]
  - Insomnia [Unknown]

NARRATIVE: CASE EVENT DATE: 20230616
